FAERS Safety Report 10185499 (Version 1)
Quarter: 2014Q2

REPORT INFORMATION
  Report Type: Spontaneous
  Country: US (occurrence: None)
  Receive Date: 20140520
  Receipt Date: 20140520
  Transmission Date: 20141212
  Serious: Yes (Hospitalization)
  Sender: FDA-Public Use
  Company Number: None

PATIENT
  Age: 54 Year
  Sex: Male

DRUGS (2)
  1. IBUPROFEN [Suspect]
     Indication: PAIN
     Route: 048
     Dates: start: 20120916
  2. EMTRICITABINE +TENOFOVIR [Concomitant]

REACTIONS (2)
  - Angioedema [None]
  - Drug reaction with eosinophilia and systemic symptoms [None]
